FAERS Safety Report 24233112 (Version 3)
Quarter: 2024Q3

REPORT INFORMATION
  Report Type: Spontaneous
  Country: FI (occurrence: FI)
  Receive Date: 20240821
  Receipt Date: 20240902
  Transmission Date: 20241017
  Serious: Yes (Other)
  Sender: ABBVIE
  Company Number: FI-LUNDBECK-DKLU4001204

PATIENT
  Age: 47 Year
  Sex: Female
  Weight: 88 kg

DRUGS (14)
  1. CARIPRAZINE [Suspect]
     Active Substance: CARIPRAZINE
     Indication: Product used for unknown indication
     Dosage: CHANGED TO OLANZAPINE 20 MG
     Route: 048
  2. SERTINDOLE [Suspect]
     Active Substance: SERTINDOLE
     Indication: Product used for unknown indication
     Dosage: STOPPED AND CHANGED TO CARIPRAZINE
     Route: 065
     Dates: start: 201306, end: 202301
  3. SERTINDOLE [Suspect]
     Active Substance: SERTINDOLE
     Indication: Product used for unknown indication
     Route: 065
  4. SERTINDOLE [Suspect]
     Active Substance: SERTINDOLE
     Indication: Product used for unknown indication
     Route: 065
  5. SERTINDOLE [Suspect]
     Active Substance: SERTINDOLE
     Indication: Product used for unknown indication
     Route: 065
     Dates: start: 2013
  6. SERTINDOLE [Suspect]
     Active Substance: SERTINDOLE
     Indication: Product used for unknown indication
     Route: 065
  7. RYALTRIS [Concomitant]
     Active Substance: MOMETASONE FUROATE MONOHYDRATE\OLOPATADINE HYDROCHLORIDE
     Indication: Product used for unknown indication
  8. ACRIVASTINE\PSEUDOEPHEDRINE HYDROCHLORIDE [Concomitant]
     Active Substance: ACRIVASTINE\PSEUDOEPHEDRINE HYDROCHLORIDE
     Indication: Asthma
  9. CERALAN [Concomitant]
     Indication: Dermatitis atopic
  10. INNOVAIR [Concomitant]
     Active Substance: BECLOMETHASONE DIPROPIONATE\FORMOTEROL
     Indication: Product used for unknown indication
     Dosage: STRONGER INNOVAIR
  11. ALBUTEROL [Concomitant]
     Active Substance: ALBUTEROL
     Indication: Product used for unknown indication
  12. MONTELUKAST [Concomitant]
     Active Substance: MONTELUKAST SODIUM
     Indication: Asthma
  13. LOMUDAL [Concomitant]
     Indication: Asthma
  14. BISOPROLOL [Concomitant]
     Active Substance: BISOPROLOL\BISOPROLOL FUMARATE
     Indication: Cardiac failure

REACTIONS (15)
  - Cardiac failure [Not Recovered/Not Resolved]
  - Atrial fibrillation [Unknown]
  - Dizziness [Unknown]
  - Sinus tachycardia [Unknown]
  - Hypertension [Unknown]
  - Chest pain [Unknown]
  - Electrocardiogram change [Unknown]
  - Right atrial enlargement [Unknown]
  - Cardiomegaly [Recovered/Resolved]
  - Aortic dilatation [Unknown]
  - Peripheral swelling [Unknown]
  - Heart rate increased [Unknown]
  - Fluid retention [Unknown]
  - Dyspnoea [Unknown]
  - Arrhythmia [Unknown]

NARRATIVE: CASE EVENT DATE: 20230301
